FAERS Safety Report 22591916 (Version 1)
Quarter: 2023Q2

REPORT INFORMATION
  Report Type: Spontaneous
  Country: US (occurrence: None)
  Receive Date: 20230612
  Receipt Date: 20230612
  Transmission Date: 20230722
  Serious: No
  Sender: FDA-Public Use
  Company Number: US-ROCHE-3127458

PATIENT
  Age: 72 Year
  Sex: Female

DRUGS (3)
  1. TECENTRIQ [Suspect]
     Active Substance: ATEZOLIZUMAB
     Indication: Lung neoplasm malignant
     Dosage: YES
     Route: 065
     Dates: start: 202203
  2. TRAMADOL [Concomitant]
     Active Substance: TRAMADOL
     Indication: Pain
  3. ADVIL [Concomitant]
     Active Substance: IBUPROFEN
     Indication: Pain

REACTIONS (9)
  - Arthralgia [Unknown]
  - Insomnia [Unknown]
  - Tendonitis [Unknown]
  - Back pain [Unknown]
  - Immobile [Not Recovered/Not Resolved]
  - Arthralgia [Unknown]
  - Nausea [Unknown]
  - Neck pain [Unknown]
  - Pain in extremity [Unknown]

NARRATIVE: CASE EVENT DATE: 20220601
